FAERS Safety Report 24966795 (Version 1)
Quarter: 2025Q1

REPORT INFORMATION
  Report Type: Spontaneous
  Country: FR (occurrence: FR)
  Receive Date: 20250213
  Receipt Date: 20250213
  Transmission Date: 20250409
  Serious: Yes (Life-Threatening)
  Sender: LUNDBECK
  Company Number: None

PATIENT
  Age: 59 Year
  Sex: Female
  Weight: 80 kg

DRUGS (1)
  1. VYEPTI [Suspect]
     Active Substance: EPTINEZUMAB-JJMR
     Indication: Migraine
     Route: 041
     Dates: start: 20240902, end: 20240902

REACTIONS (4)
  - Granulomatosis with polyangiitis [Recovering/Resolving]
  - Pulmonary renal syndrome [Recovering/Resolving]
  - Acute kidney injury [Recovering/Resolving]
  - Antineutrophil cytoplasmic antibody positive [Not Recovered/Not Resolved]

NARRATIVE: CASE EVENT DATE: 20241122
